FAERS Safety Report 6285575-2 (Version None)
Quarter: 2009Q3

REPORT INFORMATION
  Report Type: 
  Country: None (occurrence: None)
  Receive Date: 20090727
  Receipt Date: 20090113
  Transmission Date: 20100115
  Serious: No
  Sender: FDA-Public Use
  Company Number: US-TYCO HEALTHCARE/MALLINCKRODT-T200900052

PATIENT
  Sex: Male
  Weight: 107.94 kg

DRUGS (5)
  1. METHADONE HCL [Suspect]
     Indication: DRUG DEPENDENCE
     Dosage: 100 MG, QD
     Route: 048
     Dates: start: 20081217, end: 20081225
  2. METHADONE HCL [Suspect]
     Indication: DRUG DEPENDENCE
     Dosage: 110 MG, QD
     Route: 048
     Dates: start: 20081226
  3. LISINOPRIL [Concomitant]
     Indication: HYPERTENSION
     Dosage: 10 MG, QD
     Route: 048
  4. MICARDIS [Concomitant]
     Indication: HYPERTENSION
     Dosage: 80 MG, QD
     Route: 048
  5. METHADONE HCL [Concomitant]
     Dosage: 100 MG, QD
     Route: 048
     Dates: start: 19980408, end: 20081216

REACTIONS (1)
  - WITHDRAWAL SYNDROME [None]
